FAERS Safety Report 19728836 (Version 1)
Quarter: 2021Q3

REPORT INFORMATION
  Report Type: Spontaneous
  Country: AR (occurrence: AR)
  Receive Date: 20210820
  Receipt Date: 20210820
  Transmission Date: 20211014
  Serious: Yes (Other)
  Sender: FDA-Public Use
  Company Number: AR-PFIZER INC-202101033794

PATIENT
  Age: 57 Year
  Sex: Female

DRUGS (1)
  1. AZULFIDINE EN?TABS [Suspect]
     Active Substance: SULFASALAZINE
     Indication: SERONEGATIVE ARTHRITIS
     Dosage: UNK

REACTIONS (1)
  - Breast cancer [Unknown]
